FAERS Safety Report 4831136-9 (Version None)
Quarter: 2005Q4

REPORT INFORMATION
  Report Type: 
  Country: None (occurrence: None)
  Receive Date: 20051118
  Receipt Date: 20051103
  Transmission Date: 20060501
  Serious: Yes (Life-Threatening, Hospitalization)
  Sender: FDA-Public Use
  Company Number: US-AMGEN-US156607

PATIENT
  Sex: Male

DRUGS (9)
  1. NEUPOGEN [Suspect]
     Indication: PERIPHERAL BLOOD STEM CELL APHERESIS
     Dates: end: 20051024
  2. KEPIVANCE [Suspect]
     Indication: MUCOSAL INFLAMMATION
     Dates: start: 20051007, end: 20051015
  3. ARANESP [Concomitant]
  4. ZOSYN [Concomitant]
  5. HYDROCORTISONE [Concomitant]
  6. MAGNESIUM SULFATE [Concomitant]
  7. BENADRYL [Concomitant]
  8. KYTRIL [Concomitant]
  9. FENTANYL [Concomitant]

REACTIONS (2)
  - SPLENIC HAEMORRHAGE [None]
  - SPLENIC RUPTURE [None]
